FAERS Safety Report 12412374 (Version 1)
Quarter: 2016Q2

REPORT INFORMATION
  Report Type: Spontaneous
  Country: US (occurrence: US)
  Receive Date: 20160527
  Receipt Date: 20160527
  Transmission Date: 20160815
  Serious: Yes (Death, Hospitalization, Other)
  Sender: FDA-Public Use
  Company Number: US-APOTEX-2016AP008605

PATIENT
  Age: 73 Year
  Sex: Female

DRUGS (6)
  1. MYCOPHENOLATE MOFETIL. [Suspect]
     Active Substance: MYCOPHENOLATE MOFETIL
     Indication: IMMUNOSUPPRESSANT DRUG THERAPY
     Dosage: 500 MG DAILY
     Route: 065
  2. PREDNISOLONE. [Suspect]
     Active Substance: PREDNISOLONE
     Indication: IMMUNOSUPPRESSANT DRUG THERAPY
     Dosage: LONG TERM MAINTENANCE DOSE OF 7.5 MG DAILY
     Route: 065
  3. PREDNISOLONE. [Suspect]
     Active Substance: PREDNISOLONE
     Dosage: 5 MG/DL
  4. CYCLOSPORINE ORAL SOLUTION USP [Suspect]
     Active Substance: CYCLOSPORINE
     Indication: IMMUNOSUPPRESSANT DRUG THERAPY
     Dosage: TROUGH LEVELS INITIALLY 200-250 NG/ML
     Route: 065
  5. CYCLOSPORINE ORAL SOLUTION USP [Suspect]
     Active Substance: CYCLOSPORINE
     Dosage: TROUGH LEVEL WAS LESS THAN 50 NG/D
     Route: 065
  6. CYCLOSPORINE ORAL SOLUTION USP [Suspect]
     Active Substance: CYCLOSPORINE
     Dosage: AFTER 3MONTHS 100-150NG/DL
     Route: 065

REACTIONS (15)
  - Sepsis [Recovered/Resolved]
  - Thrombocytopenia [Unknown]
  - Blood creatinine increased [Recovered/Resolved]
  - Neutropenia [Unknown]
  - Mental status changes [Unknown]
  - Intestinal haemorrhage [Unknown]
  - Pneumonia [Unknown]
  - Clostridium difficile colitis [Fatal]
  - Urinary tract infection bacterial [Recovered/Resolved]
  - Multiple organ dysfunction syndrome [Fatal]
  - Cytomegalovirus enterocolitis [Fatal]
  - Pseudomonas infection [Recovered/Resolved]
  - Colitis ulcerative [Fatal]
  - Herpes zoster [Unknown]
  - Pneumonia aspiration [Fatal]
